FAERS Safety Report 6632937-7 (Version None)
Quarter: 2010Q1

REPORT INFORMATION
  Report Type: 
  Country: None (occurrence: None)
  Receive Date: 20100312
  Receipt Date: 20100304
  Transmission Date: 20100710
  Serious: Yes (Other)
  Sender: FDA-Public Use
  Company Number: US-BIOGENIDEC-2010BI005291

PATIENT
  Age: 26 Year
  Sex: Male
  Weight: 133 kg

DRUGS (2)
  1. AVONEX [Suspect]
     Indication: MULTIPLE SCLEROSIS
     Route: 030
     Dates: start: 20080101
  2. TRILEPTAL [Concomitant]
     Indication: CONVULSION
     Route: 048

REACTIONS (1)
  - CONVULSION [None]
